FAERS Safety Report 4549500-4 (Version None)
Quarter: 2005Q1

REPORT INFORMATION
  Report Type: 
  Country: None (occurrence: None)
  Receive Date: 20050110
  Receipt Date: 20050110
  Transmission Date: 20050727
  Serious: Yes (Hospitalization)
  Sender: FDA-Public Use
  Company Number: None

PATIENT
  Age: 78 Year
  Weight: 85.7298 kg

DRUGS (7)
  1. ZETIA [Suspect]
     Indication: HYPERLIPIDAEMIA
     Dates: start: 20030818, end: 20040422
  2. ZOCOR [Suspect]
  3. VERAPAMIL [Concomitant]
  4. DYAZIDE [Concomitant]
  5. GLUCOPHAGE XR [Concomitant]
  6. MOBIC [Concomitant]
  7. PREVACID [Concomitant]

REACTIONS (1)
  - RHABDOMYOLYSIS [None]
